FAERS Safety Report 5795956-9 (Version None)
Quarter: 2008Q3

REPORT INFORMATION
  Report Type: 
  Country: None (occurrence: None)
  Receive Date: 20080701
  Receipt Date: 20080623
  Transmission Date: 20090109
  Serious: Yes (Other)
  Sender: FDA-Public Use
  Company Number: US-JNJFOC-20080606019

PATIENT
  Age: 62 Year
  Sex: Female
  Weight: 52.16 kg

DRUGS (3)
  1. EXTRA STRENGTH TYLENOL [Suspect]
     Route: 048
  2. EXTRA STRENGTH TYLENOL [Suspect]
     Indication: DRUG USE FOR UNKNOWN INDICATION
     Route: 048
  3. ZOCOR [Concomitant]

REACTIONS (4)
  - BLOOD PRESSURE INCREASED [None]
  - INCORRECT DRUG ADMINISTRATION DURATION [None]
  - PALPITATIONS [None]
  - TONGUE COATED [None]
